FAERS Safety Report 18069711 (Version 2)
Quarter: 2020Q3

REPORT INFORMATION
  Report Type: Spontaneous
  Country: JP (occurrence: JP)
  Receive Date: 20200726
  Receipt Date: 20200810
  Transmission Date: 20201103
  Serious: Yes (Other)
  Sender: FDA-Public Use
  Company Number: JP-SUN PHARMACEUTICAL INDUSTRIES LTD-2020RR-254904

PATIENT
  Age: 47 Year
  Sex: Male

DRUGS (1)
  1. MINOMYCIN50 [Suspect]
     Active Substance: MINOCYCLINE HYDROCHLORIDE
     Indication: PALMOPLANTAR PUSTULOSIS
     Dosage: 100 MILLIGRAM, DAILY
     Route: 048

REACTIONS (1)
  - Anti-neutrophil cytoplasmic antibody positive vasculitis [Recovering/Resolving]
